FAERS Safety Report 8342398-8 (Version None)
Quarter: 2012Q2

REPORT INFORMATION
  Report Type: 
  Country: None (occurrence: None)
  Receive Date: 20120508
  Receipt Date: 20120502
  Transmission Date: 20120825
  Serious: No
  Sender: FDA-Public Use
  Company Number: US-BIOGENIDEC-2011BI037564

PATIENT
  Age: 50 Year
  Sex: Male

DRUGS (2)
  1. TYSABRI [Suspect]
     Indication: MULTIPLE SCLEROSIS
     Route: 042
     Dates: start: 20110919
  2. BENADRYL [Concomitant]
     Indication: PREMEDICATION

REACTIONS (5)
  - POOR VENOUS ACCESS [None]
  - DERMATITIS CONTACT [None]
  - INSOMNIA [None]
  - FATIGUE [None]
  - PSYCHOMOTOR HYPERACTIVITY [None]
